FAERS Safety Report 12187238 (Version 3)
Quarter: 2017Q1

REPORT INFORMATION
  Report Type: Spontaneous
  Country: US (occurrence: US)
  Receive Date: 20160317
  Receipt Date: 20170301
  Transmission Date: 20170428
  Serious: No
  Sender: FDA-Public Use
  Company Number: US-PFIZER INC-2016112808

PATIENT
  Age: 46 Year
  Sex: Female

DRUGS (20)
  1. PREMPRO [Suspect]
     Active Substance: ESTROGENS, CONJUGATED\MEDROXYPROGESTERONE ACETATE
     Indication: CERVIX CARCINOMA
  2. ZITHROMAX [Concomitant]
     Active Substance: AZITHROMYCIN DIHYDRATE
     Dosage: 500 MG, UNK [ON DAY ONE]
     Route: 048
     Dates: start: 20161014
  3. BENADRYL [Concomitant]
     Active Substance: DIPHENHYDRAMINE HYDROCHLORIDE
     Dosage: 50 MG, UNK
     Route: 048
     Dates: start: 20151030
  4. MOBIC [Concomitant]
     Active Substance: MELOXICAM
     Dosage: 15 MG, DAILY
     Route: 048
     Dates: start: 20151003
  5. NORCO [Concomitant]
     Active Substance: ACETAMINOPHEN\HYDROCODONE BITARTRATE
     Indication: PAIN
     Dosage: UNK UNK, AS NEEDED [HYDROCODONE: 5 MG]/[ ACETAMINOPHEN: 325 MG] (TAKE 1-2 TABLETS BY MOUTH EVERY 6)
     Route: 048
     Dates: start: 20140513
  6. DELTASONE [Concomitant]
     Active Substance: PREDNISONE
     Dosage: 50 MG, UNK [AT THE FOLLOWING TIMES PRE SCAN ON 04NOV2015-3:00 AM, 9:00 AM; AND 3:00 PM]
     Route: 048
     Dates: start: 20151030
  7. PREMPRO [Suspect]
     Active Substance: ESTROGENS, CONJUGATED\MEDROXYPROGESTERONE ACETATE
     Indication: HOT FLUSH
     Dosage: 3 DF (3 PILLS), DAILY
     Dates: start: 201312
  8. PREMPRO [Suspect]
     Active Substance: ESTROGENS, CONJUGATED\MEDROXYPROGESTERONE ACETATE
     Indication: FEELING COLD
     Dosage: 1 DF, 3X/DAY  [CONJUGATED ESTROGENS:0.625 MG] [MEDROXYPROGESTERONE: 5 MG]
     Route: 048
     Dates: start: 20170220
  9. ASPIR 81 [Concomitant]
     Dosage: 243 MG, DAILY [81 MG, 3 TABLET (243 MG) BY ORAL ROUTE EVERY DAY]
     Route: 048
     Dates: start: 20130212
  10. BELVIQ [Concomitant]
     Active Substance: LORCASERIN HYDROCHLORIDE
     Dosage: 10 MG, 2X/DAY (TAKE 10 MG BY MOUTH 2 (TWO) TIMES A DAY)
     Route: 048
     Dates: start: 20141104
  11. THERAGRAN [Concomitant]
     Active Substance: VITAMINS
     Dosage: 1 DF, 1X/DAY
     Route: 048
  12. BENADRYL [Concomitant]
     Active Substance: DIPHENHYDRAMINE HYDROCHLORIDE
     Dosage: 50 MG, UNK [ONCE]
     Route: 048
     Dates: start: 20161104
  13. SYMBICORT [Concomitant]
     Active Substance: BUDESONIDE\FORMOTEROL FUMARATE DIHYDRATE
     Dosage: 2 DF, 2X/DAY[BUDESONIDE 160 UG] /[FORMOTEROL FUMARATE 4.5 UG]/ ACTUATION
     Route: 055
     Dates: start: 20130304
  14. PREMPRO [Suspect]
     Active Substance: ESTROGENS, CONJUGATED\MEDROXYPROGESTERONE ACETATE
     Indication: PREMATURE MENOPAUSE
  15. ZITHROMAX [Concomitant]
     Active Substance: AZITHROMYCIN DIHYDRATE
     Dosage: 250 MG, UNK [ON DAYS 2 THROUGH 5]
     Route: 048
  16. CLARITIN [Concomitant]
     Active Substance: LORATADINE
     Dosage: 10 MG, AS NEEDED
     Route: 048
  17. LIDODERM [Concomitant]
     Active Substance: LIDOCAINE
     Dosage: 700 MG, 1X/DAY (PLACE 1 PATCH ONTO THE SKIN EVERY 24 HOURS)
     Route: 061
     Dates: start: 20141104
  18. VALTREX [Concomitant]
     Active Substance: VALACYCLOVIR HYDROCHLORIDE
     Dosage: 1000 MG, UNK
     Route: 048
     Dates: start: 20151211
  19. TOPROL XL [Concomitant]
     Active Substance: METOPROLOL SUCCINATE
     Dosage: 50 MG, 2X/DAY
     Route: 048
  20. ZOLOFT [Concomitant]
     Active Substance: SERTRALINE HYDROCHLORIDE
     Dosage: 100 MG, 1X/DAY
     Route: 048
     Dates: start: 20170130

REACTIONS (3)
  - Nasopharyngitis [Unknown]
  - Product use issue [Unknown]
  - Incorrect dose administered [Unknown]

NARRATIVE: CASE EVENT DATE: 201312
